FAERS Safety Report 12366273 (Version 2)
Quarter: 2016Q2

REPORT INFORMATION
  Report Type: Report from Study
  Country: US (occurrence: US)
  Receive Date: 20160513
  Receipt Date: 20160607
  Transmission Date: 20160815
  Serious: Yes (Hospitalization)
  Sender: FDA-Public Use
  Company Number: US-ACTELION-A-NJ2016-135872

PATIENT
  Age: 79 Year
  Sex: Female
  Weight: 102.4 kg

DRUGS (3)
  1. SELEXIPAG [Suspect]
     Active Substance: SELEXIPAG
     Dosage: 400 MCG, QD
     Route: 048
     Dates: start: 20150402
  2. SELEXIPAG [Suspect]
     Active Substance: SELEXIPAG
     Indication: PULMONARY ARTERIAL HYPERTENSION
     Dosage: 400 MCG, BID
     Route: 048
     Dates: start: 20160215
  3. SELEXIPAG [Suspect]
     Active Substance: SELEXIPAG
     Dosage: 400 MCG, Q12HRS
     Route: 048

REACTIONS (7)
  - Colitis [Unknown]
  - Vomiting [Unknown]
  - Nausea [Unknown]
  - Hip fracture [Unknown]
  - Gastrointestinal tube insertion [Unknown]
  - Diarrhoea [Unknown]
  - Fall [Unknown]

NARRATIVE: CASE EVENT DATE: 20160425
